FAERS Safety Report 10774838 (Version 1)
Quarter: 2015Q1

REPORT INFORMATION
  Report Type: Spontaneous
  Country: US (occurrence: US)
  Receive Date: 20150209
  Receipt Date: 20150209
  Transmission Date: 20150721
  Serious: No
  Sender: FDA-Public Use
  Company Number: US-ASTRAZENECA-2015SE09248

PATIENT
  Sex: Female
  Weight: 73.9 kg

DRUGS (8)
  1. BYETTA [Suspect]
     Active Substance: EXENATIDE
     Indication: DIABETES MELLITUS
     Route: 058
  2. GINSENG [Concomitant]
  3. COD LIVER [Concomitant]
     Active Substance: COD LIVER OIL
  4. VITAMIN E [Concomitant]
     Active Substance: .ALPHA.-TOCOPHEROL
  5. LIPITOR [Concomitant]
     Active Substance: ATORVASTATIN CALCIUM
  6. SINSPILS GLIPIZID [Concomitant]
  7. GLUTAMINE [Concomitant]
     Active Substance: GLUTAMINE
  8. MIGLITOL. [Concomitant]
     Active Substance: MIGLITOL

REACTIONS (2)
  - Intentional product misuse [Unknown]
  - Blood glucose decreased [Unknown]
